FAERS Safety Report 9056032 (Version 3)
Quarter: 2013Q2

REPORT INFORMATION
  Report Type: Spontaneous
  Country: GB (occurrence: GB)
  Receive Date: 20130205
  Receipt Date: 20130423
  Transmission Date: 20140414
  Serious: Yes (Other)
  Sender: FDA-Public Use
  Company Number: GB-JNJFOC-20130201277

PATIENT
  Sex: Male

DRUGS (3)
  1. CALPOL SIX PLUS [Suspect]
     Indication: PROCEDURAL PAIN
     Route: 048
  2. CALPOL SIX PLUS [Suspect]
     Indication: PROCEDURAL PAIN
     Route: 048
  3. SALBUTAMOL [Concomitant]
     Indication: WHEEZING
     Route: 065

REACTIONS (4)
  - Hallucination [Recovered/Resolved]
  - Abnormal behaviour [Recovered/Resolved]
  - Drug administered to patient of inappropriate age [Recovered/Resolved]
  - Drug effect decreased [Unknown]
